FAERS Safety Report 7817687-3 (Version None)
Quarter: 2011Q4

REPORT INFORMATION
  Report Type: 
  Country: None (occurrence: None)
  Receive Date: 20111017
  Receipt Date: 20111006
  Transmission Date: 20120403
  Serious: Yes (Other)
  Sender: FDA-Public Use
  Company Number: US-JNJFOC-20111004440

PATIENT
  Sex: Male
  Weight: 104.33 kg

DRUGS (1)
  1. ELMIRON [Suspect]
     Indication: CYSTITIS INTERSTITIAL
     Route: 048
     Dates: start: 20050101

REACTIONS (6)
  - POLLAKIURIA [None]
  - BLADDER IRRITATION [None]
  - BLADDER PAIN [None]
  - MICTURITION URGENCY [None]
  - NERVOUS SYSTEM DISORDER [None]
  - RASH [None]
